FAERS Safety Report 9625649 (Version 1)
Quarter: 2013Q4

REPORT INFORMATION
  Report Type: Spontaneous
  Country: FR (occurrence: FR)
  Receive Date: 20131016
  Receipt Date: 20131016
  Transmission Date: 20140711
  Serious: Yes (Hospitalization)
  Sender: FDA-Public Use
  Company Number: FR-UCBSA-100217

PATIENT
  Age: 62 Year
  Sex: Male

DRUGS (11)
  1. KEPPRA [Suspect]
     Indication: PARTIAL SEIZURES
     Route: 048
     Dates: start: 20130820, end: 20130902
  2. KEPPRA [Suspect]
     Indication: PARTIAL SEIZURES
     Route: 048
     Dates: start: 20130804, end: 20130819
  3. CRESTOR [Suspect]
     Indication: DYSLIPIDAEMIA
     Dosage: STRENGTH: 5 MG
     Route: 048
     Dates: end: 20130909
  4. ATARAX [Concomitant]
     Dosage: STRENGHT: 25 MG; IF NEEDED
  5. DIFFU-K [Concomitant]
  6. SMECTA [Concomitant]
  7. KARDEGIC [Concomitant]
     Dosage: STRENGTH: 75 MG
  8. MESTINON [Concomitant]
     Dosage: STRENGTH:60 MG
  9. IMODIUM [Concomitant]
     Dosage: STRENGTH: 2 MG
  10. SPECIAFOLDINE [Concomitant]
     Dosage: STRENGTH: 0.4 MG
  11. DOLIPRANE [Concomitant]
     Dosage: STRENGTH: 1 G

REACTIONS (2)
  - Hepatocellular injury [Not Recovered/Not Resolved]
  - Cholestasis [Not Recovered/Not Resolved]
